FAERS Safety Report 9827189 (Version 1)
Quarter: 2013Q4

REPORT INFORMATION
  Report Type: Spontaneous
  Country: US (occurrence: None)
  Receive Date: 20131112
  Receipt Date: 20131112
  Transmission Date: 20140711
  Serious: Yes (Other)
  Sender: FDA-Public Use
  Company Number: US-013158

PATIENT
  Age: 66 Year
  Sex: Female

DRUGS (1)
  1. PICO-SALAX [Suspect]
     Indication: BOWEL PREPARATION
     Dosage: (FIRST DOSE 3PM ORAL)
     Route: 048
     Dates: start: 20130925

REACTIONS (2)
  - Treatment noncompliance [None]
  - Abdominal pain upper [None]
